FAERS Safety Report 11938167 (Version 2)
Quarter: 2016Q1

REPORT INFORMATION
  Report Type: Spontaneous
  Country: US (occurrence: US)
  Receive Date: 20160122
  Receipt Date: 20160309
  Transmission Date: 20160526
  Serious: No
  Sender: FDA-Public Use
  Company Number: US-SUN PHARMACEUTICAL INDUSTRIES LTD-2015US-108222

PATIENT
  Sex: Female

DRUGS (3)
  1. PREDNISONE. [Suspect]
     Active Substance: PREDNISONE
     Indication: FACIAL PARALYSIS
     Dosage: UNK
     Route: 065
     Dates: end: 20150914
  2. AMOXICILLIN. [Suspect]
     Active Substance: AMOXICILLIN
     Indication: FACIAL PARALYSIS
     Dosage: UNK
     Route: 065
  3. VALACYCLOVIR [Suspect]
     Active Substance: VALACYCLOVIR HYDROCHLORIDE
     Indication: FACIAL PARALYSIS
     Dosage: 1 DF, BID (1 TABLET IN AFTERNOON AND 1 TABLET IN THE EVENING)
     Route: 065

REACTIONS (2)
  - Dizziness [Unknown]
  - Heart rate increased [Not Recovered/Not Resolved]
